FAERS Safety Report 5962324-6 (Version None)
Quarter: 2008Q4

REPORT INFORMATION
  Report Type: 
  Country: None (occurrence: None)
  Receive Date: 20081119
  Receipt Date: 20080808
  Transmission Date: 20090506
  Serious: No
  Sender: FDA-Public Use
  Company Number: WAES 0808USA001700

PATIENT
  Age: 69 Year
  Sex: Male

DRUGS (8)
  1. JANUVIA [Suspect]
     Indication: TYPE 2 DIABETES MELLITUS
     Dosage: 100 MG/DAILY/PO
     Route: 048
     Dates: start: 20080708
  2. ACTOS [Concomitant]
  3. PLAVIX [Concomitant]
  4. XANAX [Concomitant]
  5. THERAPY UNSPECIFIED [Concomitant]
  6. GLIPIZIDE [Concomitant]
  7. LOVASTATIN [Concomitant]
  8. METFORMIN [Concomitant]

REACTIONS (1)
  - BLOOD GLUCOSE INCREASED [None]
